FAERS Safety Report 8818068 (Version 1)
Quarter: 2012Q4

REPORT INFORMATION
  Report Type: Report from Study
  Country: US (occurrence: US)
  Receive Date: 20121001
  Receipt Date: 20121001
  Transmission Date: 20130627
  Serious: Yes (Hospitalization)
  Sender: FDA-Public Use
  Company Number: US-MERCK-1209USA006992

PATIENT
  Age: 71 Year
  Sex: Female
  Weight: 56.87 kg

DRUGS (2)
  1. MK-0683 [Suspect]
     Indication: LYMPHOMA
     Dosage: 100 mg bid, day 1,2,3,8,9,10
     Route: 048
     Dates: start: 20120904, end: 20120913
  2. CARFILZOMIB [Suspect]
     Indication: LYMPHOMA
     Dosage: 27 mg/m2, day 1,2,8,9
     Route: 042
     Dates: start: 20120904, end: 20120912

REACTIONS (1)
  - Dyspnoea [Unknown]
